FAERS Safety Report 9574344 (Version 1)
Quarter: 2013Q4

REPORT INFORMATION
  Report Type: Spontaneous
  Country: US (occurrence: US)
  Receive Date: 20131001
  Receipt Date: 20131001
  Transmission Date: 20140711
  Serious: No
  Sender: FDA-Public Use
  Company Number: US-B.I. PHARMACEUTICALS,INC./RIDGEFIELD-2013-BI-30657BP

PATIENT
  Age: 55 Year
  Sex: Female
  Weight: 97.52 kg

DRUGS (12)
  1. ATROVENT [Suspect]
     Indication: CHRONIC OBSTRUCTIVE PULMONARY DISEASE
     Dates: start: 201309
  2. SYMBICORT [Suspect]
     Indication: CHRONIC OBSTRUCTIVE PULMONARY DISEASE
     Dates: start: 201309
  3. PROAIR HFA [Suspect]
     Indication: CHRONIC OBSTRUCTIVE PULMONARY DISEASE
     Dates: start: 201309
  4. DILTIAZEM HYDROCHLORIDE [Suspect]
     Indication: HYPERTENSION
     Dosage: 120 MG
     Route: 048
     Dates: start: 2013
  5. SIMVASTATIN [Suspect]
     Indication: BLOOD CHOLESTEROL INCREASED
     Dosage: 20 MG
     Dates: start: 2013
  6. LORAZEPAM [Suspect]
     Dosage: 0.5 MG
  7. PAROXETIN HYDROCHLORIDE [Suspect]
     Dosage: 40 MG
  8. CARBAMAZEPINE [Suspect]
     Dosage: 400 MG
  9. LEVOTHYROXIN [Suspect]
     Dosage: 150 MCG
  10. RISPERIDONE [Suspect]
     Dosage: 1 MG
  11. CHANTIX [Suspect]
     Indication: SMOKING CESSATION THERAPY
     Route: 048
  12. CHANTIX [Suspect]
     Dosage: 0.5 MG
     Route: 048
     Dates: start: 20130909

REACTIONS (5)
  - Hypertension [Unknown]
  - Blood cholesterol increased [Unknown]
  - Chronic obstructive pulmonary disease [Unknown]
  - Drug interaction [Unknown]
  - Drug ineffective [Unknown]
